FAERS Safety Report 19895591 (Version 1)
Quarter: 2021Q3

REPORT INFORMATION
  Report Type: Spontaneous
  Country: US (occurrence: US)
  Receive Date: 20210929
  Receipt Date: 20210929
  Transmission Date: 20211014
  Serious: No
  Sender: FDA-Public Use
  Company Number: US-SAREPTA THERAPEUTICS INC.-SRP2021-001559

PATIENT
  Age: 5 Year
  Sex: Male

DRUGS (2)
  1. EXONDYS 51 [Suspect]
     Active Substance: ETEPLIRSEN
     Dosage: 550 MILLIGRAM, WEEKLY
     Route: 042
     Dates: start: 20210711, end: 20210711
  2. EXONDYS 51 [Suspect]
     Active Substance: ETEPLIRSEN
     Indication: DUCHENNE MUSCULAR DYSTROPHY
     Dosage: 30 MG/KG, WEEKLY
     Route: 042
     Dates: start: 202107, end: 202107

REACTIONS (3)
  - Rash [Recovered/Resolved]
  - Pruritus [Unknown]
  - Erythema [Unknown]

NARRATIVE: CASE EVENT DATE: 202107
